FAERS Safety Report 7869032-5 (Version None)
Quarter: 2011Q4

REPORT INFORMATION
  Report Type: 
  Country: None (occurrence: None)
  Receive Date: 20111021
  Receipt Date: 20111021
  Transmission Date: 20120403
  Serious: Yes (Hospitalization)
  Sender: FDA-Public Use
  Company Number: 2011SP047907

PATIENT
  Age: 52 Year
  Weight: 64 kg

DRUGS (2)
  1. TEMODAL [Suspect]
     Indication: GLIOBLASTOMA
     Dosage: 85 MG/M2, QD, PO
     Route: 048
     Dates: start: 20110711, end: 20110922
  2. DOPAMINE HCL [Concomitant]

REACTIONS (5)
  - FEBRILE NEUTROPENIA [None]
  - LEUKOPENIA [None]
  - NEOPLASM PROGRESSION [None]
  - RESPIRATORY TRACT INFECTION [None]
  - GLIOBLASTOMA [None]
